FAERS Safety Report 24787172 (Version 5)
Quarter: 2025Q2

REPORT INFORMATION
  Report Type: Report from Study
  Country: US (occurrence: US)
  Receive Date: 20241230
  Receipt Date: 20250519
  Transmission Date: 20250717
  Serious: No
  Sender: SUNOVION
  Company Number: US-SUMITOMO PHARMA SWITZERLAND GMBH-2024SPA005991

PATIENT

DRUGS (2)
  1. ORGOVYX [Suspect]
     Active Substance: RELUGOLIX
     Indication: Prostate cancer
     Route: 048
     Dates: start: 20241112, end: 20241112
  2. ORGOVYX [Suspect]
     Active Substance: RELUGOLIX
     Dosage: 120 MG, QD
     Route: 048
     Dates: start: 20241113

REACTIONS (17)
  - Decreased appetite [Unknown]
  - Quality of life decreased [Unknown]
  - Feeling cold [Unknown]
  - Muscle atrophy [Unknown]
  - Anxiety [Unknown]
  - Malaise [Unknown]
  - Muscle spasms [Unknown]
  - Feeling abnormal [Unknown]
  - Vomiting [Recovering/Resolving]
  - Headache [Unknown]
  - Nausea [Unknown]
  - Diarrhoea [Unknown]
  - Arthritis [Unknown]
  - Insomnia [Unknown]
  - Hot flush [Unknown]
  - Myalgia [Unknown]
  - Weight increased [Unknown]
